FAERS Safety Report 15972553 (Version 1)
Quarter: 2019Q1

REPORT INFORMATION
  Report Type: Spontaneous
  Country: DE (occurrence: DE)
  Receive Date: 20190216
  Receipt Date: 20190216
  Transmission Date: 20190418
  Serious: Yes (Other)
  Sender: FDA-Public Use
  Company Number: DE-ACCORD-107173

PATIENT
  Sex: Female

DRUGS (3)
  1. LETROZOLE. [Suspect]
     Active Substance: LETROZOLE
     Indication: PRODUCT USED FOR UNKNOWN INDICATION
     Route: 065
  2. AFINITOR [Suspect]
     Active Substance: EVEROLIMUS
     Indication: BREAST CANCER METASTATIC
     Route: 065
  3. IBRANCE [Suspect]
     Active Substance: PALBOCICLIB
     Indication: BREAST CANCER METASTATIC
     Dosage: CYCLIC
     Route: 065

REACTIONS (19)
  - Aphthous ulcer [Unknown]
  - Dizziness [Unknown]
  - Malaise [Unknown]
  - White blood cell count decreased [Unknown]
  - Feeding disorder [Unknown]
  - Polyneuropathy [Unknown]
  - Stomatitis [Unknown]
  - Decreased appetite [Unknown]
  - Rhinorrhoea [Unknown]
  - Dysphagia [Unknown]
  - Dyspnoea [Unknown]
  - Drug ineffective [Unknown]
  - Platelet count decreased [Unknown]
  - Oropharyngeal pain [Unknown]
  - Neutrophil count abnormal [Unknown]
  - Headache [Unknown]
  - Skin disorder [Unknown]
  - Hypoaesthesia [Unknown]
  - Urinary tract infection [Unknown]
